FAERS Safety Report 7830726-9 (Version None)
Quarter: 2011Q4

REPORT INFORMATION
  Report Type: 
  Country: None (occurrence: None)
  Receive Date: 20111010
  Receipt Date: 20111006
  Transmission Date: 20120403
  Serious: Yes (Hospitalization)
  Sender: FDA-Public Use
  Company Number: 1000024666

PATIENT
  Age: 35 Year
  Sex: Female

DRUGS (1)
  1. MEMANTINE HYDROCHLORIDE [Suspect]
     Dosage: (2000 MG, ONCE), ORAL
     Route: 048

REACTIONS (12)
  - LOSS OF CONSCIOUSNESS [None]
  - DIZZINESS [None]
  - TACHYCARDIA [None]
  - TOXICITY TO VARIOUS AGENTS [None]
  - DIPLOPIA [None]
  - CONVULSION [None]
  - INTENTIONAL OVERDOSE [None]
  - NYSTAGMUS [None]
  - RESPIRATORY ALKALOSIS [None]
  - MYDRIASIS [None]
  - HEADACHE [None]
  - HYPERTENSION [None]
